FAERS Safety Report 8618581-0 (Version None)
Quarter: 2012Q3

REPORT INFORMATION
  Report Type: 
  Country: None (occurrence: None)
  Receive Date: 20120824
  Receipt Date: 20120821
  Transmission Date: 20120928
  Serious: No
  Sender: FDA-Public Use
  Company Number: US-PFIZER INC-2012184636

PATIENT
  Sex: Female

DRUGS (2)
  1. ARTHROTEC [Suspect]
     Dosage: UNK
  2. FELDENE [Suspect]
     Dosage: 10 MG, UNK

REACTIONS (4)
  - MUSCLE STRAIN [None]
  - BACK INJURY [None]
  - GAIT DISTURBANCE [None]
  - PAIN [None]
